FAERS Safety Report 7783458-X (Version None)
Quarter: 2011Q3

REPORT INFORMATION
  Report Type: 
  Country: None (occurrence: None)
  Receive Date: 20110928
  Receipt Date: 20110928
  Transmission Date: 20111222
  Serious: Yes (Other)
  Sender: FDA-Public Use
  Company Number: None

PATIENT
  Age: 33 Month
  Sex: Male
  Weight: 14.061 kg

DRUGS (1)
  1. ORAPRED [Suspect]
     Indication: ASTHMA
     Dosage: 15 MG
     Route: 048
     Dates: start: 20110826, end: 20110826

REACTIONS (5)
  - MANIA [None]
  - OVERDOSE [None]
  - SOMNOLENCE [None]
  - AGGRESSION [None]
  - MEDICATION ERROR [None]
